FAERS Safety Report 10509378 (Version 5)
Quarter: 2014Q4

REPORT INFORMATION
  Report Type: Report from Study
  Country: DE (occurrence: DE)
  Receive Date: 20141009
  Receipt Date: 20141210
  Transmission Date: 20150528
  Serious: Yes (Other)
  Sender: FDA-Public Use
  Company Number: PHHY2014DE122494

PATIENT
  Sex: Male
  Weight: 75 kg

DRUGS (4)
  1. ICL670A [Suspect]
     Active Substance: DEFERASIROX
     Indication: MYELODYSPLASTIC SYNDROME
     Dosage: 20 MG/KG PER DAY (3 TABLETS OF 500 MG)=1500 MG TOTAL
     Route: 065
     Dates: start: 20140305, end: 20140408
  2. ASPIRIN. [Concomitant]
     Active Substance: ASPIRIN
     Indication: ARTERIOSCLEROSIS
     Dosage: 100 MG, QD
     Route: 048
  3. ICL670A [Suspect]
     Active Substance: DEFERASIROX
     Indication: SERUM FERRITIN INCREASED
     Dosage: 13.33 MG/KG PER DAY, 2 DF OF 500 MG=1000 MG TOTAL
     Route: 065
     Dates: start: 20140409, end: 20140514
  4. ICL670A [Suspect]
     Active Substance: DEFERASIROX
     Dosage: 10 MG/KG PER DAY, 1 TABLET A 500 MG = 750 MG TOTAL
     Route: 065
     Dates: start: 20140514

REACTIONS (4)
  - Arteriosclerosis [Not Recovered/Not Resolved]
  - Creatinine renal clearance decreased [Not Recovered/Not Resolved]
  - Blood creatinine increased [Recovered/Resolved]
  - Serum ferritin increased [Unknown]

NARRATIVE: CASE EVENT DATE: 20140408
